FAERS Safety Report 17718394 (Version 5)
Quarter: 2025Q1

REPORT INFORMATION
  Report Type: Spontaneous
  Country: PT (occurrence: PT)
  Receive Date: 20200428
  Receipt Date: 20250110
  Transmission Date: 20250408
  Serious: Yes (Death, Life-Threatening, Hospitalization, Other)
  Sender: AUROBINDO
  Company Number: PT-MLMSERVICE-20200403-2247979-1

PATIENT
  Age: 57 Year
  Sex: Female
  Weight: 56 kg

DRUGS (21)
  1. ATENOLOL [Suspect]
     Active Substance: ATENOLOL
     Indication: Supraventricular extrasystoles
     Route: 065
     Dates: start: 200709, end: 20090316
  2. DIAZEPAM [Interacting]
     Active Substance: DIAZEPAM
     Indication: Depression
     Route: 065
  3. DIAZEPAM [Interacting]
     Active Substance: DIAZEPAM
     Indication: Depressive symptom
  4. DOXORUBICIN [Interacting]
     Active Substance: DOXORUBICIN
     Indication: Breast cancer
     Route: 042
     Dates: start: 200804
  5. PERINDOPRIL [Suspect]
     Active Substance: PERINDOPRIL
     Indication: Product used for unknown indication
     Route: 065
     Dates: start: 200903
  6. TIANEPTINE [Interacting]
     Active Substance: TIANEPTINE
     Indication: Depressive symptom
     Route: 065
  7. TIANEPTINE [Interacting]
     Active Substance: TIANEPTINE
     Indication: Depression
  8. TAMOXIFEN [Suspect]
     Active Substance: TAMOXIFEN
     Indication: Invasive ductal breast carcinoma
     Route: 065
     Dates: start: 200809
  9. TAMOXIFEN [Suspect]
     Active Substance: TAMOXIFEN
     Indication: HER2 positive breast cancer
  10. TAMOXIFEN [Suspect]
     Active Substance: TAMOXIFEN
     Indication: Breast cancer
  11. ESTAZOLAM [Interacting]
     Active Substance: ESTAZOLAM
     Indication: Depression
     Route: 065
  12. ESTAZOLAM [Interacting]
     Active Substance: ESTAZOLAM
     Indication: Depressive symptom
  13. HERCEPTIN [Interacting]
     Active Substance: TRASTUZUMAB
     Indication: Invasive ductal breast carcinoma
     Route: 041
     Dates: start: 20081008
  14. HERCEPTIN [Interacting]
     Active Substance: TRASTUZUMAB
     Indication: HER2 positive breast cancer
  15. HERCEPTIN [Interacting]
     Active Substance: TRASTUZUMAB
     Indication: Breast cancer
  16. CYCLOPHOSPHAMIDE [Concomitant]
     Active Substance: CYCLOPHOSPHAMIDE
     Indication: Breast cancer
     Route: 042
     Dates: start: 200804
  17. DOCETAXEL [Concomitant]
     Active Substance: DOCETAXEL
     Indication: Breast cancer
     Route: 042
     Dates: start: 200804
  18. PERINDOPRIL ARGININE [Concomitant]
     Active Substance: PERINDOPRIL ARGININE
     Indication: Ejection fraction decreased
     Dosage: 5 MILLIGRAM, ONCE A DAY
     Route: 048
     Dates: start: 20090316
  19. TAMOXIFEN [Concomitant]
     Active Substance: TAMOXIFEN
     Indication: Breast cancer
     Route: 048
     Dates: start: 20080918
  20. TRASTUZUMAB [Concomitant]
     Active Substance: TRASTUZUMAB
     Indication: Breast cancer
     Route: 065
     Dates: start: 200810, end: 20090309
  21. TRASTUZUMAB [Concomitant]
     Active Substance: TRASTUZUMAB
     Indication: Invasive ductal breast carcinoma

REACTIONS (7)
  - Sudden cardiac death [Fatal]
  - Arrhythmia [Fatal]
  - Cardiac death [Fatal]
  - Drug interaction [Fatal]
  - Ejection fraction decreased [Fatal]
  - Left atrial enlargement [Fatal]
  - Depression [Unknown]

NARRATIVE: CASE EVENT DATE: 20090101
